FAERS Safety Report 5166205-X (Version None)
Quarter: 2006Q4

REPORT INFORMATION
  Report Type: 
  Country: None (occurrence: None)
  Receive Date: 20060830
  Receipt Date: 20060421
  Transmission Date: 20070319
  Serious: No
  Sender: FDA-Public Use
  Company Number: 224354

PATIENT
  Age: 69 Year
  Sex: Female
  Weight: 96.1 kg

DRUGS (2)
  1. XOLAIR [Suspect]
     Indication: ASTHMA
     Dosage: 300 MG , Q2W, SUBCUTANEOUS
     Route: 058
     Dates: start: 20051215
  2. ADVAIR DISKUS 100/50 [Concomitant]

REACTIONS (2)
  - ERYTHEMA [None]
  - PALPITATIONS [None]
